FAERS Safety Report 18585123 (Version 3)
Quarter: 2021Q1

REPORT INFORMATION
  Report Type: Report from Study
  Country: US (occurrence: US)
  Receive Date: 20201207
  Receipt Date: 20210305
  Transmission Date: 20210419
  Serious: No
  Sender: FDA-Public Use
  Company Number: US-INCYTE CORPORATION-2020IN011492

PATIENT

DRUGS (5)
  1. JADENU [Concomitant]
     Active Substance: DEFERASIROX
     Route: 065
  2. CALTRATE +D [CALCIUM CARBONATE;VITAMIN D NOS] [Concomitant]
     Active Substance: CALCIUM CARBONATE\VITAMIN D
     Route: 065
  3. FOLIC ACID. [Concomitant]
     Active Substance: FOLIC ACID
     Route: 065
  4. JAKAFI [Suspect]
     Active Substance: RUXOLITINIB
     Indication: MYELOFIBROSIS
     Dosage: 20 MILLIGRAM, BID
     Route: 048
     Dates: start: 20200318
  5. SYNTHROID [Concomitant]
     Active Substance: LEVOTHYROXINE SODIUM
     Route: 065

REACTIONS (10)
  - Peripheral swelling [Unknown]
  - Procedural pain [Unknown]
  - Intentional product use issue [Unknown]
  - Malaise [Unknown]
  - Nerve compression [Unknown]
  - Pain [Not Recovered/Not Resolved]
  - Gait disturbance [Unknown]
  - Product availability issue [Unknown]
  - Asthenia [Unknown]
  - Mobility decreased [Unknown]

NARRATIVE: CASE EVENT DATE: 20201215
